FAERS Safety Report 22965198 (Version 3)
Quarter: 2023Q4

REPORT INFORMATION
  Report Type: Report from Study
  Country: CA (occurrence: CA)
  Receive Date: 20230921
  Receipt Date: 20231106
  Transmission Date: 20240110
  Serious: Yes (Hospitalization, Other)
  Sender: FDA-Public Use
  Company Number: CA-JNJFOC-20230934903

PATIENT
  Age: 35 Year
  Sex: Male
  Weight: 81 kg

DRUGS (2)
  1. REMICADE [Suspect]
     Active Substance: INFLIXIMAB
     Indication: Crohn^s disease
     Dosage: V2: BATCH NUMBER : 23A041.A?EXPIRY DATE- 28-FEB-2026
     Route: 042
  2. METHOTREXATE [Concomitant]
     Active Substance: METHOTREXATE
     Indication: Product used for unknown indication
     Route: 065

REACTIONS (6)
  - Rectal abscess [Recovering/Resolving]
  - Haematochezia [Not Recovered/Not Resolved]
  - Ankylosing spondylitis [Unknown]
  - COVID-19 [Recovered/Resolved]
  - Haemorrhoids [Unknown]
  - Constipation [Not Recovered/Not Resolved]

NARRATIVE: CASE EVENT DATE: 20230101
